FAERS Safety Report 8845396 (Version 1)
Quarter: 2012Q4

REPORT INFORMATION
  Report Type: 
  Country: US (occurrence: US)
  Receive Date: 20121017
  Receipt Date: 20121017
  Transmission Date: 20130627
  Serious: Yes (Hospitalization, Other)
  Sender: FDA-Public Use
  Company Number: US-SHIRE-ALL1-2012-04834

PATIENT
  Age: 39 Year
  Sex: Female
  Weight: 54.42 kg

DRUGS (2)
  1. VYVANSE [Suspect]
     Indication: ATTENTION DEFICIT/HYPERACTIVITY DISORDER
     Dosage: 20 mg, 1x/day:qd
     Route: 048
     Dates: start: 2007
  2. VYVANSE [Suspect]
     Dosage: 60 mg, 1x/day:qd
     Route: 048
     Dates: start: 201101

REACTIONS (10)
  - Cervix carcinoma [Recovered/Resolved]
  - Arterial injury [Recovered/Resolved]
  - Haemorrhage [Recovered/Resolved]
  - Amphetamines positive [Not Recovered/Not Resolved]
  - Tachyphrenia [Recovered/Resolved]
  - Emotional distress [Recovered/Resolved]
  - Disturbance in attention [Recovered/Resolved]
  - Depression [Recovered/Resolved]
  - Drug ineffective [Recovered/Resolved]
  - Mania [Recovered/Resolved]
